FAERS Safety Report 24853497 (Version 1)
Quarter: 2025Q1

REPORT INFORMATION
  Report Type: Report from Study
  Country: US (occurrence: US)
  Receive Date: 20250117
  Receipt Date: 20250117
  Transmission Date: 20250409
  Serious: Yes (Other)
  Sender: JAZZ
  Company Number: US-JAZZ PHARMACEUTICALS-2024-US-019044

PATIENT
  Sex: Female

DRUGS (2)
  1. EPIDIOLEX [Suspect]
     Active Substance: CANNABIDIOL
     Indication: Lennox-Gastaut syndrome
     Dosage: 3.7 MILLILITER, BID
     Route: 048
     Dates: start: 202312
  2. EPIDIOLEX [Suspect]
     Active Substance: CANNABIDIOL
     Dosage: 3.7 MILLILITER, BID
     Route: 048
     Dates: start: 202312

REACTIONS (3)
  - Generalised tonic-clonic seizure [Recovering/Resolving]
  - Seizure [Unknown]
  - Drug ineffective [Unknown]
